FAERS Safety Report 4822845-6 (Version None)
Quarter: 2005Q4

REPORT INFORMATION
  Report Type: 
  Country: None (occurrence: None)
  Receive Date: 20051104
  Receipt Date: 20051024
  Transmission Date: 20060501
  Serious: Yes (Other)
  Sender: FDA-Public Use
  Company Number: 2005120981

PATIENT
  Age: 22 Year
  Sex: Male
  Weight: 62 kg

DRUGS (7)
  1. ZITHROMAX [Suspect]
     Indication: PNEUMONIA
     Dosage: 500 MG (500 MG, 1 IN 1 D), INTRAVENOUS
     Route: 042
     Dates: start: 20050121, end: 20050123
  2. ZITHROMAX [Suspect]
     Indication: PNEUMONIA
     Dosage: 500 MG (250 MG, 2 IN 1 D), ORAL
     Route: 048
     Dates: start: 20050124, end: 20050201
  3. CEFIXIME (CEFIXIME) [Concomitant]
  4. PROSPAN (HEDERA HELIX) [Concomitant]
  5. BENPROPERINE (BENPROPERINE) [Concomitant]
  6. DIABEX (METFORMIN HYDROCHLORIDE) [Concomitant]
  7. HUMULIN N [Concomitant]

REACTIONS (1)
  - BLOOD GLUCOSE INCREASED [None]
